FAERS Safety Report 4639847-5 (Version None)
Quarter: 2005Q2

REPORT INFORMATION
  Report Type: 
  Country: None (occurrence: None)
  Receive Date: 20050328
  Receipt Date: 20050111
  Transmission Date: 20051028
  Serious: Yes (Hospitalization)
  Sender: FDA-Public Use
  Company Number: USA050188039

PATIENT
  Age: 16 Year
  Sex: Male
  Weight: 49 kg

DRUGS (2)
  1. STRATTERA [Suspect]
     Dosage: 80 MG IN THE MORNING
  2. SEROQUEL [Concomitant]

REACTIONS (4)
  - DIZZINESS [None]
  - HEART RATE INCREASED [None]
  - HYPOTENSION [None]
  - PRESCRIBED OVERDOSE [None]
